FAERS Safety Report 8369377-9 (Version None)
Quarter: 2012Q2

REPORT INFORMATION
  Report Type: 
  Country: None (occurrence: None)
  Receive Date: 20120518
  Receipt Date: 20120509
  Transmission Date: 20120825
  Serious: Yes (Hospitalization, Other)
  Sender: FDA-Public Use
  Company Number: FR-MILLENNIUM PHARMACEUTICALS, INC.-2011-06331

PATIENT

DRUGS (8)
  1. VELCADE [Suspect]
     Indication: MULTIPLE MYELOMA
     Dosage: 1.3 MG/M2, CYCLIC
     Dates: start: 20110419, end: 20111109
  2. IRON [Concomitant]
  3. HYPERIUM                           /00939801/ [Concomitant]
     Dosage: UNK
  4. MELPHALAN HYDROCHLORIDE [Suspect]
     Indication: MULTIPLE MYELOMA
     Dosage: 6 MG/M2, CYCLIC
     Route: 048
     Dates: start: 20110419, end: 20111109
  5. PREDNISONE [Suspect]
     Indication: MULTIPLE MYELOMA
     Dosage: 80 MG, UNK
     Route: 048
     Dates: start: 20110419, end: 20111109
  6. NICARDIPINE HCL [Concomitant]
     Indication: HYPERTENSION
     Dosage: 20 MG, UNK
     Route: 048
  7. VITAMIN D [Concomitant]
  8. ARANESP [Concomitant]

REACTIONS (3)
  - PYREXIA [None]
  - PANCYTOPENIA [None]
  - HAEMATOMA [None]
